FAERS Safety Report 9880256 (Version 10)
Quarter: 2014Q3

REPORT INFORMATION
  Report Type: Report from Study
  Country: US (occurrence: US)
  Receive Date: 20140207
  Receipt Date: 20140805
  Transmission Date: 20150326
  Serious: Yes (Hospitalization, Disabling, Other)
  Sender: FDA-Public Use
  Company Number: US-BRISTOL-MYERS SQUIBB COMPANY-20132080

PATIENT
  Age: 54 Year
  Sex: Male
  Weight: 117.9 kg

DRUGS (31)
  1. CLOPIDOGREL BISULFATE. [Concomitant]
     Active Substance: CLOPIDOGREL BISULFATE
  2. CLOTRIMAZOLE. [Concomitant]
     Active Substance: CLOTRIMAZOLE
  3. ZOFRAN [Concomitant]
     Active Substance: ONDANSETRON HYDROCHLORIDE
  4. TRIAMCINOLONE [Concomitant]
     Active Substance: TRIAMCINOLONE
     Dates: start: 20140407
  5. TACROLIMUS. [Suspect]
     Active Substance: TACROLIMUS
     Dates: start: 20130423, end: 20140519
  6. OMEPRAZOLE. [Concomitant]
     Active Substance: OMEPRAZOLE
  7. CALCIUM + VITAMIN D [Concomitant]
     Active Substance: CALCIUM\VITAMIN D
  8. ATROPINE [Concomitant]
     Active Substance: ATROPINE
     Dates: start: 20140407
  9. ALEMTUZUMAB [Suspect]
     Active Substance: ALEMTUZUMAB
     Indication: RENAL TRANSPLANT
     Dates: start: 20130814
  10. VALGANCICLOVIR [Concomitant]
     Active Substance: VALGANCICLOVIR
  11. FLUCONAZOLE. [Concomitant]
     Active Substance: FLUCONAZOLE
  12. SILDENAFIL [Concomitant]
     Active Substance: SILDENAFIL
  13. CIDOFOVIR. [Concomitant]
     Active Substance: CIDOFOVIR
  14. VALIUM [Concomitant]
     Active Substance: DIAZEPAM
  15. ATENOLOL. [Concomitant]
     Active Substance: ATENOLOL
  16. AMLODIPINE [Concomitant]
     Active Substance: AMLODIPINE BESYLATE
  17. INSULIN LISPRO [Concomitant]
     Active Substance: INSULIN LISPRO
  18. MECLIZINE [Concomitant]
     Active Substance: MECLIZINE\MECLIZINE HYDROCHLORIDE
  19. ACETAMINOPHEN. [Concomitant]
     Active Substance: ACETAMINOPHEN
  20. PREDNISOLONE ACETATE. [Concomitant]
     Active Substance: PREDNISOLONE ACETATE
     Dates: start: 20140324
  21. BELATACEPT [Suspect]
     Active Substance: BELATACEPT
     Indication: PROPHYLAXIS AGAINST TRANSPLANT REJECTION
     Route: 042
     Dates: start: 20130814
  22. MYFORTIC [Suspect]
     Active Substance: MYCOPHENOLATE SODIUM
     Indication: PROPHYLAXIS AGAINST TRANSPLANT REJECTION
     Dosage: RESUMED 360MG TWICE DAILY.
     Dates: start: 20130814
  23. LANTUS [Concomitant]
     Active Substance: INSULIN GLARGINE
  24. ALLOPURINOL. [Concomitant]
     Active Substance: ALLOPURINOL
  25. GEMFIBROZIL. [Concomitant]
     Active Substance: GEMFIBROZIL
  26. MULTIVITAMIN [Concomitant]
     Active Substance: VITAMINS
  27. NIFEDIPINE. [Concomitant]
     Active Substance: NIFEDIPINE
  28. ATOVAQUONE. [Concomitant]
     Active Substance: ATOVAQUONE
     Dates: start: 20140131, end: 20140703
  29. SENOKOT [Concomitant]
     Active Substance: SENNOSIDES
  30. AZITHROMYCIN [Concomitant]
     Active Substance: AZITHROMYCIN ANHYDROUS
  31. CLONIDINE. [Concomitant]
     Active Substance: CLONIDINE

REACTIONS (14)
  - Uveitis [Not Recovered/Not Resolved]
  - Choroidal detachment [Not Recovered/Not Resolved]
  - Iris adhesions [Unknown]
  - Hypotony of eye [Unknown]
  - Cytomegalovirus hepatitis [Recovered/Resolved]
  - Hyperlipidaemia [Recovered/Resolved]
  - Eye inflammation [Unknown]
  - Cytomegalovirus viraemia [Unknown]
  - Diabetes mellitus inadequate control [Recovered/Resolved]
  - Liver function test abnormal [Recovering/Resolving]
  - Anterior chamber flare [Unknown]
  - Blindness [Not Recovered/Not Resolved]
  - Kidney transplant rejection [Recovering/Resolving]
  - Corneal abrasion [Unknown]

NARRATIVE: CASE EVENT DATE: 2014
